FAERS Safety Report 15787404 (Version 1)
Quarter: 2019Q1

REPORT INFORMATION
  Report Type: Spontaneous
  Country: US (occurrence: US)
  Receive Date: 20190103
  Receipt Date: 20190103
  Transmission Date: 20190417
  Serious: No
  Sender: FDA-Public Use
  Company Number: US-PERRIGO-18US006984

PATIENT
  Age: 68 Year
  Sex: Female
  Weight: 79.37 kg

DRUGS (3)
  1. CLINDAMYCIN PHOSPHATE. [Suspect]
     Active Substance: CLINDAMYCIN PHOSPHATE
     Indication: FOLLICULITIS
     Dosage: SMALL AMOUNT, PRN
     Route: 061
     Dates: start: 201712
  2. KETOCONAZOLE. [Concomitant]
     Active Substance: KETOCONAZOLE
     Indication: FOLLICULITIS
     Dosage: UNKNOWN, UNKNOWN
     Route: 061
     Dates: start: 2018
  3. HIBICLENS [Concomitant]
     Active Substance: CHLORHEXIDINE GLUCONATE
     Indication: FOLLICULITIS
     Dosage: UNKNOWN, UNKNOWN
     Route: 061
     Dates: start: 2018

REACTIONS (2)
  - Off label use [Unknown]
  - Condition aggravated [Recovered/Resolved]

NARRATIVE: CASE EVENT DATE: 201712
